FAERS Safety Report 8169893-9 (Version None)
Quarter: 2012Q1

REPORT INFORMATION
  Report Type: 
  Country: None (occurrence: None)
  Receive Date: 20120104
  Receipt Date: 20111206
  Transmission Date: 20120608
  Serious: No
  Sender: FDA-Public Use
  Company Number: 2011HGS-002671

PATIENT
  Age: 29 Year
  Sex: Female
  Weight: 61.6892 kg

DRUGS (7)
  1. PLAQUENIL (HYDROXYCHLOROQUINE SULFATE) (HYDROXYCHLOROQUINE SULFATE) [Concomitant]
  2. PREDNISONE [Concomitant]
  3. IMURAN [Concomitant]
  4. ASPIRIN [Concomitant]
  5. SYNTHROID (LEVOTHYROXINE SODIUM ) (LEVOTHYROXINE SODIUM) [Concomitant]
  6. PRENATAL VITAMINS (PRENATAL VITAMINS) (ASCORBIC ACID, BIOTIN, TOCOPHER [Concomitant]
  7. BENLYSTA [Suspect]
     Indication: SYSTEMIC LUPUS ERYTHEMATOSUS
     Dosage: 10 MG/KG, EVERY 2 WEEKS X 3 THEN EVERY 4 WEEKS, INTRAVENOUS DRIP
     Route: 041
     Dates: start: 20110601, end: 20110705

REACTIONS (3)
  - MATERNAL EXPOSURE DURING PREGNANCY [None]
  - PAIN OF SKIN [None]
  - ALOPECIA [None]
